FAERS Safety Report 4548404-0 (Version None)
Quarter: 2005Q1

REPORT INFORMATION
  Report Type: 
  Country: None (occurrence: None)
  Receive Date: 20050106
  Receipt Date: 20050106
  Transmission Date: 20050727
  Serious: Yes (Hospitalization)
  Sender: FDA-Public Use
  Company Number: None

PATIENT
  Age: 74 Year
  Sex: Male
  Weight: 103.3 kg

DRUGS (16)
  1. PROCANBID [Suspect]
     Dosage: 500 MG (4 X 500MG SR TABLETS) PO
     Route: 048
     Dates: start: 20041119, end: 20041121
  2. TENORMIN [Concomitant]
  3. VITAMIN K [Concomitant]
  4. CARDENE [Concomitant]
  5. ASPIRIN [Concomitant]
  6. ISOSORBIDE MONONITRATE [Concomitant]
  7. NITROGLYCERIN [Concomitant]
  8. PROCAN [Concomitant]
  9. FOLATE [Concomitant]
  10. VIT B6 [Concomitant]
  11. VIT B12 [Concomitant]
  12. LIPITOR [Concomitant]
  13. DARVOCET [Concomitant]
  14. TETRACYCLINE [Concomitant]
  15. PROTONIC [Concomitant]
  16. LASIX [Concomitant]

REACTIONS (4)
  - ANTINUCLEAR ANTIBODY POSITIVE [None]
  - ANTIPHOSPHOLIPID ANTIBODIES [None]
  - HEPATIC MASS [None]
  - LUPUS-LIKE SYNDROME [None]
